FAERS Safety Report 20939612 (Version 1)
Quarter: 2022Q2

REPORT INFORMATION
  Report Type: Spontaneous
  Country: US (occurrence: None)
  Receive Date: 20220609
  Receipt Date: 20220609
  Transmission Date: 20220721
  Serious: Yes (Life-Threatening, Hospitalization, Disabling)
  Sender: FDA-Public Use
  Company Number: None

PATIENT
  Age: 53 Year
  Sex: Female
  Weight: 99.79 kg

DRUGS (1)
  1. ZONISAMIDE [Suspect]
     Active Substance: ZONISAMIDE
     Indication: Seizure
     Dosage: FREQUENCY : DAILY; 5-7 YEARS?
     Route: 048

REACTIONS (8)
  - Abdominal pain upper [None]
  - Nausea [None]
  - Vomiting [None]
  - Asthenia [None]
  - Abdominal pain upper [None]
  - Diarrhoea [None]
  - Product contamination [None]
  - Therapy cessation [None]

NARRATIVE: CASE EVENT DATE: 20220419
